FAERS Safety Report 6251966-9 (Version None)
Quarter: 2009Q2

REPORT INFORMATION
  Report Type: 
  Country: None (occurrence: None)
  Receive Date: 20090630
  Receipt Date: 20090619
  Transmission Date: 20091009
  Serious: Yes (Hospitalization)
  Sender: FDA-Public Use
  Company Number: DE-ELI_LILLY_AND_COMPANY-DE200906006051

PATIENT
  Sex: Male

DRUGS (3)
  1. ZYPREXA [Suspect]
  2. CHLORPROTHIXENE [Concomitant]
  3. CIPRAMIL [Concomitant]

REACTIONS (1)
  - ACUTE PSYCHOSIS [None]
